FAERS Safety Report 13767630 (Version 3)
Quarter: 2017Q3

REPORT INFORMATION
  Report Type: Spontaneous
  Country: US (occurrence: US)
  Receive Date: 20170719
  Receipt Date: 20170828
  Transmission Date: 20171127
  Serious: Yes (Hospitalization, Other)
  Sender: FDA-Public Use
  Company Number: US-TEVA-788608USA

PATIENT
  Age: 77 Year
  Sex: Male
  Weight: 45.4 kg

DRUGS (13)
  1. TRAMADOL. [Concomitant]
     Active Substance: TRAMADOL
  2. PANTOPRAZOLE [Concomitant]
     Active Substance: PANTOPRAZOLE
  3. SYNRIBO [Suspect]
     Active Substance: OMACETAXINE MEPESUCCINATE
     Indication: CHRONIC MYELOID LEUKAEMIA
     Dosage: 5.2 MILLIGRAM DAILY;
     Route: 065
     Dates: start: 20170707
  4. PROAIR HFA [Suspect]
     Active Substance: ALBUTEROL SULFATE
     Route: 065
  5. LACTULOSE. [Concomitant]
     Active Substance: LACTULOSE
  6. MAGNESIUM [Concomitant]
     Active Substance: MAGNESIUM
  7. SPIRIVA [Concomitant]
     Active Substance: TIOTROPIUM BROMIDE MONOHYDRATE
  8. LANTUS [Concomitant]
     Active Substance: INSULIN GLARGINE
  9. LOVASTATIN. [Concomitant]
     Active Substance: LOVASTATIN
  10. BABY ASPIRIN [Concomitant]
     Active Substance: ASPIRIN
  11. CALCITRIOL. [Concomitant]
     Active Substance: CALCITRIOL
  12. IRON [Concomitant]
     Active Substance: IRON
  13. VITAMIN D [Concomitant]
     Active Substance: CHOLECALCIFEROL

REACTIONS (3)
  - Sepsis [Unknown]
  - Diarrhoea [Not Recovered/Not Resolved]
  - Influenza like illness [Not Recovered/Not Resolved]

NARRATIVE: CASE EVENT DATE: 20170711
